FAERS Safety Report 24846326 (Version 1)
Quarter: 2025Q1

REPORT INFORMATION
  Report Type: Spontaneous
  Country: CN (occurrence: CN)
  Receive Date: 20250115
  Receipt Date: 20250115
  Transmission Date: 20250408
  Serious: Yes (Disabling, Other)
  Sender: BEIGENE
  Company Number: CN-BEIGENE-BGN-2025-000571

PATIENT

DRUGS (9)
  1. TISLELIZUMAB [Suspect]
     Active Substance: TISLELIZUMAB
     Indication: Lung adenocarcinoma
     Route: 041
     Dates: start: 20241025
  2. TISLELIZUMAB [Suspect]
     Active Substance: TISLELIZUMAB
     Dates: start: 20241118
  3. TISLELIZUMAB [Suspect]
     Active Substance: TISLELIZUMAB
     Route: 041
     Dates: start: 20241210
  4. CARBOPLATIN [Concomitant]
     Active Substance: CARBOPLATIN
     Indication: Lung adenocarcinoma
     Dates: start: 20241025
  5. CARBOPLATIN [Concomitant]
     Active Substance: CARBOPLATIN
     Dates: start: 20241118
  6. CARBOPLATIN [Concomitant]
     Active Substance: CARBOPLATIN
     Route: 041
     Dates: start: 20241210
  7. PEMETREXED DISODIUM [Concomitant]
     Active Substance: PEMETREXED DISODIUM
     Indication: Lung adenocarcinoma
     Route: 041
     Dates: start: 20241210
  8. PACLITAXEL [Concomitant]
     Active Substance: PACLITAXEL
     Indication: Lung adenocarcinoma
     Route: 041
     Dates: start: 20241025
  9. PACLITAXEL [Concomitant]
     Active Substance: PACLITAXEL
     Dates: start: 20241118

REACTIONS (1)
  - Hepatic failure [Recovering/Resolving]

NARRATIVE: CASE EVENT DATE: 20241231
